FAERS Safety Report 4522434-7 (Version None)
Quarter: 2004Q4

REPORT INFORMATION
  Report Type: 
  Country: None (occurrence: None)
  Receive Date: 20041207
  Receipt Date: 20041119
  Transmission Date: 20050328
  Serious: Yes (Other)
  Sender: FDA-Public Use
  Company Number: US95102596A

PATIENT
  Age: 39 Year
  Sex: Male

DRUGS (4)
  1. HUMULIN R [Suspect]
     Indication: DIABETES MELLITUS
     Dates: start: 19880101
  2. HUMULIN N [Suspect]
     Indication: DIABETES MELLITUS
     Dates: start: 19880101
  3. INSULIN-INSULIN-ANIMAL (INSUL [Suspect]
  4. LOTENSIN [Concomitant]

REACTIONS (13)
  - BLOOD GLUCOSE INCREASED [None]
  - BLOOD TEST ABNORMAL [None]
  - COMA [None]
  - DIABETIC NEPHROPATHY [None]
  - FATIGUE [None]
  - FEELING ABNORMAL [None]
  - GLYCOSYLATED HAEMOGLOBIN INCREASED [None]
  - INSOMNIA [None]
  - LOSS OF CONSCIOUSNESS [None]
  - METABOLIC DISORDER [None]
  - NAUSEA [None]
  - NOCTURIA [None]
  - THERAPEUTIC RESPONSE DECREASED [None]
